FAERS Safety Report 9446394 (Version 5)
Quarter: 2022Q2

REPORT INFORMATION
  Report Type: Spontaneous
  Country: US (occurrence: US)
  Receive Date: 20130807
  Receipt Date: 20220520
  Transmission Date: 20220721
  Serious: No
  Sender: FDA-Public Use
  Company Number: US-AMGEN-USASP2013021705

PATIENT
  Age: 65 Year
  Sex: Female
  Weight: 80.726 kg

DRUGS (32)
  1. ENBREL [Suspect]
     Active Substance: ETANERCEPT
     Indication: Product used for unknown indication
     Dosage: UNK
     Route: 065
  2. PRED FORTE [Suspect]
     Active Substance: PREDNISOLONE ACETATE
     Indication: Product used for unknown indication
     Dosage: UNK
     Route: 047
  3. IODINE [Suspect]
     Active Substance: IODINE
     Indication: Product used for unknown indication
     Dosage: UNK
     Route: 065
  4. VERSED [Suspect]
     Active Substance: MIDAZOLAM HYDROCHLORIDE
     Indication: Product used for unknown indication
     Dosage: UNK
     Route: 065
  5. FLONASE [Suspect]
     Active Substance: FLUTICASONE PROPIONATE
     Indication: Product used for unknown indication
     Dosage: UNK
     Route: 065
  6. POLYMYXIN B SULFATE\TRIMETHOPRIM [Suspect]
     Active Substance: POLYMYXIN B SULFATE\TRIMETHOPRIM
     Indication: Product used for unknown indication
     Dosage: UNK
     Route: 065
  7. CODEINE [Suspect]
     Active Substance: CODEINE
     Indication: Product used for unknown indication
     Dosage: UNK
     Route: 065
  8. XELJANZ [Concomitant]
     Active Substance: TOFACITINIB CITRATE
     Indication: Product used for unknown indication
     Dosage: 5 MG, BID
     Route: 048
  9. AMLODIPINE [Concomitant]
     Active Substance: AMLODIPINE BESYLATE
     Dosage: 5 MG, UNK
  10. METHOTREXATE [Concomitant]
     Active Substance: METHOTREXATE
     Dosage: 2.5 MG, UNK
  11. SIMVASTATIN [Concomitant]
     Active Substance: SIMVASTATIN
     Dosage: 50 MG, 1X/DAY
  12. PRILOSEC [Concomitant]
     Active Substance: OMEPRAZOLE MAGNESIUM
     Dosage: 20 MG, 1X/DAY
  13. VITAMIN D [Concomitant]
     Active Substance: VITAMIN D NOS
     Dosage: 1000 UNIT, UNK
  14. CALCIUM\VITAMIN D [Concomitant]
     Active Substance: CALCIUM\VITAMIN D
     Dosage: 10 MILLIGRAM  *SINGLE
  15. ASPIRIN [Concomitant]
     Active Substance: ASPIRIN
     Dosage: 81 MG, UNK
  16. ASPIRIN [Concomitant]
     Active Substance: ASPIRIN
     Dosage: 325 UNK, TID
  17. FOLIC ACID [Concomitant]
     Active Substance: FOLIC ACID
     Dosage: UNK
  18. ALEVE [Concomitant]
     Active Substance: NAPROXEN SODIUM
     Dosage: UNK
  19. TYLENOL [Concomitant]
     Active Substance: ACETAMINOPHEN
     Dosage: 500 UNK, UNK
  20. FISH OIL [Concomitant]
     Active Substance: FISH OIL
     Dosage: 100 UNK, TWICE A DAY
  21. ENALAPRIL [Concomitant]
     Active Substance: ENALAPRIL
     Dosage: 10 MG, ONCE A DAY
  22. SUDAFED [Concomitant]
     Active Substance: PSEUDOEPHEDRINE HYDROCHLORIDE
     Dosage: 30 G, AS NEEDED
  23. HUMIRA [Concomitant]
     Active Substance: ADALIMUMAB
     Dosage: 40 UNK, UNK
  24. HUMIRA [Concomitant]
     Active Substance: ADALIMUMAB
     Dosage: 40 UNK, UNK
  25. PARAFFIN [Concomitant]
     Active Substance: PARAFFIN
     Dosage: UNK
  26. DEXAMETHASONE [Concomitant]
     Active Substance: DEXAMETHASONE
     Dosage: UNK
  27. DILTIAZEM [Concomitant]
     Active Substance: DILTIAZEM
     Dosage: 240 G, UNK
  28. SEAFLOX [Concomitant]
     Dosage: UNK
  29. TICOVAC [Concomitant]
     Active Substance: TICK-BORNE ENCEPHALITIS PURIFIED ANTIGEN (FORMALDEHYDE INACTIVATED)
     Dosage: 5 G, WEEKLY
  30. FENTANYL [Concomitant]
     Active Substance: FENTANYL
     Dosage: 200 G, UNK
  31. BIOTIN [Concomitant]
     Active Substance: BIOTIN
     Dosage: UNK
  32. BIOTIN [Concomitant]
     Active Substance: BIOTIN
     Dosage: UNK

REACTIONS (1)
  - Drug hypersensitivity [Unknown]
